FAERS Safety Report 19292484 (Version 1)
Quarter: 2021Q2

REPORT INFORMATION
  Report Type: Spontaneous
  Country: CZ (occurrence: CZ)
  Receive Date: 20210524
  Receipt Date: 20210524
  Transmission Date: 20210717
  Serious: Yes (Hospitalization, Other)
  Sender: FDA-Public Use
  Company Number: CZ-AUROBINDO-AUR-APL-2021-020704

PATIENT
  Age: 25 Year
  Sex: Male

DRUGS (2)
  1. LEVOMEPROMAZINE [Concomitant]
     Active Substance: LEVOMEPROMAZINE
     Indication: PRODUCT USED FOR UNKNOWN INDICATION
     Dosage: UNK (FOR TWO YEARS)
     Route: 065
  2. QUETIAPINE. [Suspect]
     Active Substance: QUETIAPINE
     Indication: SCHIZOPHRENIA
     Dosage: 800 MILLIGRAM, DAILY
     Route: 065

REACTIONS (10)
  - Hyponatraemia [Recovered/Resolved]
  - Vertigo [Recovered/Resolved]
  - Hyperlipidaemia [Recovering/Resolving]
  - Hyperglycaemia [Recovered/Resolved]
  - Hypercholesterolaemia [Recovering/Resolving]
  - Tachycardia [Recovered/Resolved]
  - Vomiting [Recovered/Resolved]
  - Hypertriglyceridaemia [Recovering/Resolving]
  - Dyspnoea [Recovered/Resolved]
  - Oedematous pancreatitis [Recovered/Resolved]
